FAERS Safety Report 16153861 (Version 1)
Quarter: 2019Q2

REPORT INFORMATION
  Report Type: Report from Study
  Country: JP (occurrence: JP)
  Receive Date: 20190403
  Receipt Date: 20190403
  Transmission Date: 20190711
  Serious: Yes (Hospitalization, Other)
  Sender: FDA-Public Use
  Company Number: PHHY2013JP168278

PATIENT
  Age: 78 Year
  Sex: Female

DRUGS (51)
  1. SOLU-MEDROL [Concomitant]
     Active Substance: METHYLPREDNISOLONE SODIUM SUCCINATE
     Dosage: 80 MG,
     Route: 042
     Dates: start: 20130627, end: 20130627
  2. ACETAMINOPHEN. [Concomitant]
     Active Substance: ACETAMINOPHEN
     Dosage: 400 MG,
     Route: 065
     Dates: start: 20131205, end: 20131205
  3. RESTAMIN [Concomitant]
     Active Substance: DIPHENHYDRAMINE
     Dosage: 30 MG,
     Route: 065
     Dates: start: 20130725, end: 20130725
  4. RESTAMIN [Concomitant]
     Active Substance: DIPHENHYDRAMINE
     Dosage: 30 MG,
     Route: 065
     Dates: start: 20131205, end: 20131205
  5. CEFEPIME [Concomitant]
     Active Substance: CEFEPIME HYDROCHLORIDE
     Indication: PNEUMONIA
     Dosage: 2 G,
     Route: 051
  6. SOLU-MEDROL [Concomitant]
     Active Substance: METHYLPREDNISOLONE SODIUM SUCCINATE
     Dosage: 80 MG,
     Route: 042
     Dates: start: 20130725, end: 20130725
  7. SOLU-MEDROL [Concomitant]
     Active Substance: METHYLPREDNISOLONE SODIUM SUCCINATE
     Dosage: 80 MG,
     Route: 042
     Dates: start: 20130925, end: 20130925
  8. ACETAMINOPHEN. [Concomitant]
     Active Substance: ACETAMINOPHEN
     Dosage: 400 MG,
     Route: 065
     Dates: start: 20130620, end: 20130620
  9. RESTAMIN [Concomitant]
     Active Substance: DIPHENHYDRAMINE
     Indication: PRODUCT USED FOR UNKNOWN INDICATION
     Dosage: 30 MG,
     Route: 065
     Dates: start: 20130613, end: 20130613
  10. RESTAMIN [Concomitant]
     Active Substance: DIPHENHYDRAMINE
     Dosage: 30 MG,
     Route: 065
     Dates: start: 20130620, end: 20130620
  11. RESTAMIN [Concomitant]
     Active Substance: DIPHENHYDRAMINE
     Dosage: 30 MG,
     Route: 065
     Dates: start: 20130829, end: 20130829
  12. RESTAMIN [Concomitant]
     Active Substance: DIPHENHYDRAMINE
     Dosage: 30 MG,
     Route: 065
     Dates: start: 20131106, end: 20131106
  13. SOLU-MEDROL [Concomitant]
     Active Substance: METHYLPREDNISOLONE SODIUM SUCCINATE
     Dosage: 80 MG,
     Route: 042
     Dates: start: 20130704, end: 20130704
  14. ACETAMINOPHEN. [Concomitant]
     Active Substance: ACETAMINOPHEN
     Dosage: 400 MG,
     Route: 065
     Dates: start: 20130711, end: 20130711
  15. RESTAMIN [Concomitant]
     Active Substance: DIPHENHYDRAMINE
     Dosage: 30 MG,
     Route: 065
     Dates: start: 20130711, end: 20130711
  16. SOLU-MEDROL [Concomitant]
     Active Substance: METHYLPREDNISOLONE SODIUM SUCCINATE
     Dosage: 80 MG,
     Route: 042
     Dates: start: 20130718, end: 20130718
  17. SOLU-MEDROL [Concomitant]
     Active Substance: METHYLPREDNISOLONE SODIUM SUCCINATE
     Dosage: 80 MG,
     Route: 042
     Dates: start: 20130829, end: 20130829
  18. ACETAMINOPHEN. [Concomitant]
     Active Substance: ACETAMINOPHEN
     Dosage: 400 MG,
     Route: 065
     Dates: start: 20130801, end: 20130801
  19. RESTAMIN [Concomitant]
     Active Substance: DIPHENHYDRAMINE
     Dosage: 30 MG,
     Route: 065
     Dates: start: 20130925, end: 20130925
  20. ARZERRA [Suspect]
     Active Substance: OFATUMUMAB
     Dosage: 2000 MG, QD
     Route: 041
     Dates: start: 20130704, end: 20130704
  21. ARZERRA [Suspect]
     Active Substance: OFATUMUMAB
     Dosage: 2000 MG, QD
     Route: 041
     Dates: start: 20130725, end: 20130725
  22. ARZERRA [Suspect]
     Active Substance: OFATUMUMAB
     Dosage: 2000 MG, QD
     Route: 041
     Dates: start: 20130925, end: 20130925
  23. ARZERRA [Suspect]
     Active Substance: OFATUMUMAB
     Dosage: 2000 MG, QD
     Route: 041
     Dates: start: 20131106, end: 20131106
  24. SOLU-MEDROL [Concomitant]
     Active Substance: METHYLPREDNISOLONE SODIUM SUCCINATE
     Indication: RASH
     Dosage: 80 MG, QD
     Route: 042
     Dates: start: 20130613, end: 20130613
  25. SOLU-MEDROL [Concomitant]
     Active Substance: METHYLPREDNISOLONE SODIUM SUCCINATE
     Dosage: 80 MG,
     Route: 042
     Dates: start: 20131205, end: 20131205
  26. ACETAMINOPHEN. [Concomitant]
     Active Substance: ACETAMINOPHEN
     Indication: PRODUCT USED FOR UNKNOWN INDICATION
     Dosage: 400 MG,
     Route: 065
     Dates: start: 20130613, end: 20130613
  27. ACETAMINOPHEN. [Concomitant]
     Active Substance: ACETAMINOPHEN
     Dosage: 400 MG,
     Route: 065
     Dates: start: 20130829, end: 20130829
  28. ACETAMINOPHEN. [Concomitant]
     Active Substance: ACETAMINOPHEN
     Dosage: 400 MG,
     Route: 065
     Dates: start: 20130925, end: 20130925
  29. RESTAMIN [Concomitant]
     Active Substance: DIPHENHYDRAMINE
     Dosage: 30 MG,
     Route: 065
     Dates: start: 20130704, end: 20130704
  30. RESTAMIN [Concomitant]
     Active Substance: DIPHENHYDRAMINE
     Dosage: 30 MG,
     Route: 065
     Dates: start: 20130718, end: 20130718
  31. ARZERRA [Suspect]
     Active Substance: OFATUMUMAB
     Indication: PRODUCT USED FOR UNKNOWN INDICATION
     Dosage: 300 MG, QD
     Route: 041
     Dates: start: 20130613, end: 20130613
  32. ARZERRA [Suspect]
     Active Substance: OFATUMUMAB
     Dosage: 2000 MG, QD
     Route: 041
     Dates: start: 20130711, end: 20130711
  33. ARZERRA [Suspect]
     Active Substance: OFATUMUMAB
     Dosage: 2000 MG, QD
     Route: 041
     Dates: start: 20130829, end: 20130829
  34. SOLU-MEDROL [Concomitant]
     Active Substance: METHYLPREDNISOLONE SODIUM SUCCINATE
     Dosage: 80 MG,
     Route: 042
     Dates: start: 20130620, end: 20130620
  35. ACETAMINOPHEN. [Concomitant]
     Active Substance: ACETAMINOPHEN
     Dosage: 400 MG,
     Route: 065
     Dates: start: 20130627, end: 20130627
  36. ACETAMINOPHEN. [Concomitant]
     Active Substance: ACETAMINOPHEN
     Dosage: 400 MG,
     Route: 065
     Dates: start: 20130704, end: 20130704
  37. ACETAMINOPHEN. [Concomitant]
     Active Substance: ACETAMINOPHEN
     Dosage: 400 MG,
     Route: 065
     Dates: start: 20130725, end: 20130725
  38. ZOVIRAX [Concomitant]
     Active Substance: ACYCLOVIR
     Indication: INFECTION PROPHYLAXIS
     Dosage: 200 MG, QD
     Route: 048
  39. ARZERRA [Suspect]
     Active Substance: OFATUMUMAB
     Dosage: 1000 MG, QD
     Route: 041
     Dates: start: 20130620, end: 20130620
  40. ARZERRA [Suspect]
     Active Substance: OFATUMUMAB
     Dosage: 2000 MG, QD
     Route: 041
     Dates: start: 20130718, end: 20130718
  41. ARZERRA [Suspect]
     Active Substance: OFATUMUMAB
     Dosage: 2000 MG, QD
     Route: 041
     Dates: start: 20130801, end: 20130801
  42. ARZERRA [Suspect]
     Active Substance: OFATUMUMAB
     Dosage: 2000 MG, QD
     Route: 041
     Dates: start: 20131205, end: 20131205
  43. SOLU-MEDROL [Concomitant]
     Active Substance: METHYLPREDNISOLONE SODIUM SUCCINATE
     Dosage: 80 MG,
     Route: 042
     Dates: start: 20130801, end: 20130801
  44. SOLU-MEDROL [Concomitant]
     Active Substance: METHYLPREDNISOLONE SODIUM SUCCINATE
     Dosage: 80 MG,
     Route: 042
     Dates: start: 20131106, end: 20131106
  45. ACETAMINOPHEN. [Concomitant]
     Active Substance: ACETAMINOPHEN
     Dosage: 400 MG,
     Route: 065
     Dates: start: 20130718, end: 20130718
  46. RESTAMIN [Concomitant]
     Active Substance: DIPHENHYDRAMINE
     Dosage: 30 MG,
     Route: 065
     Dates: start: 20130627, end: 20130627
  47. RESTAMIN [Concomitant]
     Active Substance: DIPHENHYDRAMINE
     Dosage: 30 MG,
     Route: 065
     Dates: start: 20130801, end: 20130801
  48. BAKTAR [Concomitant]
     Active Substance: SULFAMETHOXAZOLE\TRIMETHOPRIM
     Indication: INFECTION PROPHYLAXIS
     Dosage: 2 DF, QD
     Route: 048
  49. ARZERRA [Suspect]
     Active Substance: OFATUMUMAB
     Dosage: 2000 MG, QD
     Route: 041
     Dates: start: 20130627, end: 20130627
  50. SOLU-MEDROL [Concomitant]
     Active Substance: METHYLPREDNISOLONE SODIUM SUCCINATE
     Dosage: 80 MG,
     Route: 042
     Dates: start: 20130711, end: 20130711
  51. ACETAMINOPHEN. [Concomitant]
     Active Substance: ACETAMINOPHEN
     Dosage: 400 MG,
     Route: 065
     Dates: start: 20131106, end: 20131106

REACTIONS (15)
  - Erythema [Recovering/Resolving]
  - Oropharyngeal discomfort [Recovered/Resolved]
  - Headache [Recovered/Resolved]
  - Cough [Recovered/Resolved]
  - Dizziness [Recovering/Resolving]
  - Eyelid oedema [Recovering/Resolving]
  - Erythema [Recovered/Resolved]
  - Pneumonia [Recovered/Resolved]
  - Deafness [Recovered/Resolved]
  - Productive cough [Recovered/Resolved]
  - Eyelid oedema [Recovered/Resolved]
  - Cough [Recovered/Resolved]
  - Ear discomfort [Recovering/Resolving]
  - Urticaria [Recovered/Resolved]
  - Dysphonia [Recovered/Resolved]

NARRATIVE: CASE EVENT DATE: 20130613
